FAERS Safety Report 15076587 (Version 1)
Quarter: 2018Q2

REPORT INFORMATION
  Report Type: Spontaneous
  Country: CZ (occurrence: CZ)
  Receive Date: 20180627
  Receipt Date: 20180627
  Transmission Date: 20180711
  Serious: Yes (Hospitalization)
  Sender: FDA-Public Use
  Company Number: CZ-ACELLA PHARMACEUTICALS, LLC-2050061

PATIENT
  Age: 17 Year
  Sex: Female

DRUGS (1)
  1. BROMPHENIRAMINE MAL, PSEUDOEPHEDRINE HCL, AND DEXTROMETHORPHAN HBR [Suspect]
     Active Substance: BROMPHENIRAMINE MALEATE\DEXTROMETHORPHAN HYDROBROMIDE\PSEUDOEPHEDRINE HYDROCHLORIDE
     Indication: SUICIDE ATTEMPT

REACTIONS (5)
  - Mydriasis [Recovering/Resolving]
  - Vasodilatation [Recovered/Resolved]
  - Tremor [Recovered/Resolved]
  - Tachycardia [Recovered/Resolved]
  - Hypertonia [Recovered/Resolved]
